FAERS Safety Report 4615436-3 (Version None)
Quarter: 2005Q1

REPORT INFORMATION
  Report Type: 
  Country: None (occurrence: None)
  Receive Date: 20050317
  Receipt Date: 20050304
  Transmission Date: 20050727
  Serious: Yes (Other)
  Sender: FDA-Public Use
  Company Number: 2005042115

PATIENT
  Age: 32 Year
  Sex: Male

DRUGS (4)
  1. ZITHROMAX [Suspect]
     Indication: COUGH
     Dosage: ORAL
     Route: 048
     Dates: start: 20050303, end: 20050303
  2. CYCLOPHOSPAMIDE (CYCLOPHOSPAMIDE) [Suspect]
     Indication: ILL-DEFINED DISORDER
  3. VINCRISTINE SULFATE [Suspect]
     Indication: ILL-DEFINED DISORDER
     Dosage: INTRAVENOUS
     Route: 042
  4. OSELTAMIVIR (OSELTAMIVIR) [Concomitant]

REACTIONS (2)
  - INFLUENZA [None]
  - INTERSTITIAL LUNG DISEASE [None]
